FAERS Safety Report 7659800-7 (Version None)
Quarter: 2011Q3

REPORT INFORMATION
  Report Type: 
  Country: None (occurrence: None)
  Receive Date: 20110805
  Receipt Date: 20110804
  Transmission Date: 20111222
  Serious: Yes (Hospitalization)
  Sender: FDA-Public Use
  Company Number: GXKR2011DE02493

PATIENT
  Sex: Female
  Weight: 61 kg

DRUGS (2)
  1. EPIRUBICIN HEXAL [Suspect]
     Dosage: 86.5 MG
     Route: 042
  2. OXALIPLATIN [Suspect]
     Dosage: 225 MG
     Route: 042

REACTIONS (5)
  - DYSPNOEA [None]
  - STRIDOR [None]
  - ABDOMINAL PAIN LOWER [None]
  - BLOOD URINE PRESENT [None]
  - SENSORY DISTURBANCE [None]
